FAERS Safety Report 7577439-9 (Version None)
Quarter: 2011Q2

REPORT INFORMATION
  Report Type: 
  Country: None (occurrence: None)
  Receive Date: 20110628
  Receipt Date: 20110607
  Transmission Date: 20111010
  Serious: Yes (Hospitalization)
  Sender: FDA-Public Use
  Company Number: US-BAYER-2011-024390

PATIENT
  Age: 44 Year
  Sex: Female
  Weight: 116 kg

DRUGS (12)
  1. LAMICTAL [Concomitant]
     Indication: BIPOLAR DISORDER
     Dosage: 150 MG, OM
     Dates: start: 20050101
  2. AMBIEN [Concomitant]
     Dosage: 20 MG, HS
  3. LAMICTAL [Concomitant]
     Dosage: 200 MG, HS
  4. LANTUS [Concomitant]
     Indication: DIABETES MELLITUS
     Dosage: UNK UNK, QD
     Route: 058
     Dates: start: 19970101
  5. BISOPROLOL FUMARATE AND HYDROCHLOROTHIAZIDE [Concomitant]
     Dosage: 6.25 MG, QD
     Route: 048
     Dates: start: 19970101
  6. VALIUM [Concomitant]
     Indication: ANXIETY
     Dosage: UNK
     Dates: start: 20050101
  7. NOVOLOG [Concomitant]
     Indication: DIABETES MELLITUS
     Dosage: UNK UNK, QD
     Dates: start: 19970101
  8. YASMIN [Suspect]
     Indication: CONTRACEPTION
     Dosage: UNK
     Route: 048
     Dates: start: 20050901, end: 20070201
  9. TRICOR [Concomitant]
     Dosage: 40 MG, QD
     Route: 048
  10. DIOVAN [Concomitant]
     Dosage: 160 MG, QD
     Route: 048
  11. YAZ [Suspect]
     Indication: CONTRACEPTION
  12. LEXAPRO [Concomitant]
     Indication: BIPOLAR DISORDER
     Dosage: UNK
     Dates: start: 20050101

REACTIONS (3)
  - PULMONARY EMBOLISM [None]
  - DEEP VEIN THROMBOSIS [None]
  - ANXIETY [None]
